FAERS Safety Report 21568357 (Version 13)
Quarter: 2023Q2

REPORT INFORMATION
  Report Type: Report from Study
  Country: US (occurrence: US)
  Receive Date: 20221108
  Receipt Date: 20230512
  Transmission Date: 20230721
  Serious: Yes (Hospitalization)
  Sender: FDA-Public Use
  Company Number: US-PFIZER INC-PV202200093641

PATIENT
  Age: 80 Year
  Sex: Female
  Weight: 54.3 kg

DRUGS (53)
  1. DOXORUBICIN HYDROCHLORIDE [Suspect]
     Active Substance: DOXORUBICIN HYDROCHLORIDE
     Indication: Diffuse large B-cell lymphoma stage IV
     Dosage: 50 MG/M2 1Q3W
     Route: 042
     Dates: start: 20220610, end: 20220923
  2. RITUXIMAB [Suspect]
     Active Substance: RITUXIMAB
     Indication: Diffuse large B-cell lymphoma stage IV
     Dosage: 375 MG/M2 1Q3W
     Route: 042
     Dates: start: 20220610, end: 20220923
  3. VINCRISTINE SULFATE [Suspect]
     Active Substance: VINCRISTINE SULFATE
     Indication: Diffuse large B-cell lymphoma stage IV
     Dosage: 1.4 MG/M2 1Q3W
     Route: 042
     Dates: start: 20220610, end: 20220610
  4. VINCRISTINE SULFATE [Suspect]
     Active Substance: VINCRISTINE SULFATE
     Dosage: 1 MG/M2 1Q3W
     Route: 042
     Dates: start: 20220701, end: 20220701
  5. VINCRISTINE SULFATE [Suspect]
     Active Substance: VINCRISTINE SULFATE
     Dosage: 1.4 MG/M2 (WITH A RECOMMENDED CAP OF 2MG) 1Q3W
     Route: 042
     Dates: start: 20220722, end: 20220812
  6. VINCRISTINE SULFATE [Suspect]
     Active Substance: VINCRISTINE SULFATE
     Dosage: 1 MG/M2 1Q3W
     Route: 042
     Dates: start: 20220902, end: 20220902
  7. EPCORITAMAB [Suspect]
     Active Substance: EPCORITAMAB
     Indication: Diffuse large B-cell lymphoma stage IV
     Dosage: PRIMING DOSE
     Route: 058
     Dates: start: 20220610, end: 20220610
  8. EPCORITAMAB [Suspect]
     Active Substance: EPCORITAMAB
     Dosage: INTERMEDIATE DOSE
     Route: 058
     Dates: start: 20220617, end: 20220617
  9. EPCORITAMAB [Suspect]
     Active Substance: EPCORITAMAB
     Dosage: FULL DOSE
     Route: 058
     Dates: start: 20220624, end: 20220826
  10. EPCORITAMAB [Suspect]
     Active Substance: EPCORITAMAB
     Dosage: FULL DOSE 1Q3W
     Route: 058
     Dates: start: 20220902, end: 20220923
  11. EPCORITAMAB [Suspect]
     Active Substance: EPCORITAMAB
     Dosage: FULL DOSE 1Q4W
     Route: 058
     Dates: start: 20221021, end: 20221118
  12. CYCLOPHOSPHAMIDE [Suspect]
     Active Substance: CYCLOPHOSPHAMIDE
     Indication: Diffuse large B-cell lymphoma stage IV
     Dosage: 750 MILLIGRAM/SQ. METER, 1Q3W
     Route: 042
     Dates: start: 20220610, end: 20220923
  13. PREDNISONE [Suspect]
     Active Substance: PREDNISONE
     Indication: Diffuse large B-cell lymphoma stage IV
     Dosage: 100 MG, 1X/DAY
     Route: 048
     Dates: start: 20220610, end: 20220614
  14. PREDNISONE [Suspect]
     Active Substance: PREDNISONE
     Dosage: 100 MG, 1X/DAY
     Route: 048
     Dates: start: 20220617, end: 20220620
  15. PREDNISONE [Suspect]
     Active Substance: PREDNISONE
     Dosage: 100 MG, 1X/DAY
     Route: 048
     Dates: start: 20220624, end: 20220627
  16. PREDNISONE [Suspect]
     Active Substance: PREDNISONE
     Dosage: 100 MG, 1X/DAY
     Route: 048
     Dates: start: 20220701, end: 20220705
  17. PREDNISONE [Suspect]
     Active Substance: PREDNISONE
     Dosage: 100 MG, 1X/DAY
     Route: 048
     Dates: start: 20220722, end: 20220726
  18. PREDNISONE [Suspect]
     Active Substance: PREDNISONE
     Dosage: 100 MG, 1X/DAY
     Route: 048
     Dates: start: 20220812, end: 20220816
  19. PREDNISONE [Suspect]
     Active Substance: PREDNISONE
     Dosage: 100 MG, 1X/DAY
     Route: 048
     Dates: start: 20220902, end: 20220906
  20. PREDNISONE [Suspect]
     Active Substance: PREDNISONE
     Dosage: 100 MG, 1X/DAY
     Route: 048
     Dates: start: 20220923, end: 20220927
  21. DIPHENHYDRAMINE [Concomitant]
     Active Substance: DIPHENHYDRAMINE
     Dosage: 25 MG
     Route: 042
     Dates: start: 20220902, end: 20220923
  22. ACETAMINOPHEN [Concomitant]
     Active Substance: ACETAMINOPHEN
     Dosage: 650 MG
     Route: 048
     Dates: start: 20220902, end: 20220923
  23. CONJUGATED ESTROGENS [Concomitant]
     Active Substance: ESTROGENS, CONJUGATED
     Dosage: UNK
     Dates: start: 20210716
  24. SODIUM CHLORIDE [Concomitant]
     Active Substance: SODIUM CHLORIDE
     Dosage: CONTINUOUS
     Route: 040
     Dates: start: 20220610, end: 20221011
  25. VALACYCLOVIR HYDROCHLORIDE [Concomitant]
     Active Substance: VALACYCLOVIR HYDROCHLORIDE
     Dosage: UNK
     Dates: start: 20220614, end: 20221004
  26. NEULASTA [Concomitant]
     Active Substance: PEGFILGRASTIM
     Dosage: UNK
     Dates: start: 20220610, end: 20220923
  27. ATROVENT [Concomitant]
     Active Substance: IPRATROPIUM BROMIDE
  28. GUAIFENESIN [Concomitant]
     Active Substance: GUAIFENESIN
     Dosage: UNK
     Dates: start: 20220826, end: 20220911
  29. ACYCLOVIR [Concomitant]
     Active Substance: ACYCLOVIR
     Dosage: UNK
     Dates: start: 20220812
  30. ALBUTEROL [Concomitant]
     Active Substance: ALBUTEROL
     Dosage: UNK
     Dates: start: 20221010, end: 20221010
  31. AMOXICILLIN\CLAVULANIC ACID [Concomitant]
     Active Substance: AMOXICILLIN\CLAVULANIC ACID
     Indication: Rhinorrhoea
     Dosage: UNK
     Dates: start: 20220826, end: 20221009
  32. AMOXICILLIN\CLAVULANIC ACID [Concomitant]
     Active Substance: AMOXICILLIN\CLAVULANIC ACID
     Dosage: UNK
     Dates: start: 20220910
  33. APREPITANT [Concomitant]
     Active Substance: APREPITANT
     Dosage: UNK
     Dates: start: 20220610, end: 20220923
  34. BENZOCAINE [Concomitant]
     Active Substance: BENZOCAINE
     Dosage: UNK
     Dates: start: 20220911, end: 20220914
  35. BETAMETHASONE [Concomitant]
     Active Substance: BETAMETHASONE
     Dosage: UNK
     Dates: start: 20220712, end: 20220909
  36. DOCUSATE [Concomitant]
     Active Substance: DOCUSATE
     Dosage: UNK
     Dates: start: 20220610
  37. DEXTROMETHORPHAN\GUAIFENESIN [Concomitant]
     Active Substance: DEXTROMETHORPHAN\GUAIFENESIN
     Dosage: UNK
     Dates: start: 20220826, end: 20220911
  38. ESTRATEST [Concomitant]
     Active Substance: ESTROGENS, ESTERIFIED\METHYLTESTOSTERONE
     Dosage: UNK
     Dates: start: 20220520, end: 20221125
  39. ENOXAPARIN [Concomitant]
     Active Substance: ENOXAPARIN
     Dosage: UNK
     Dates: start: 20220625, end: 20221016
  40. LIDOCAINE [Concomitant]
     Active Substance: LIDOCAINE
     Dosage: UNK
     Dates: start: 20220915, end: 20220920
  41. LORATADINE [Concomitant]
     Active Substance: LORATADINE
     Dosage: UNK
     Dates: start: 20220812, end: 20221007
  42. OXYCODONE [Concomitant]
     Active Substance: OXYCODONE
     Dosage: UNK
     Dates: start: 20220914, end: 20220914
  43. ONDANSETRON [Concomitant]
     Active Substance: ONDANSETRON
     Dosage: Q8H (EVERY 8 HRS).
     Dates: start: 20220610
  44. PALONOSETRON [Concomitant]
     Active Substance: PALONOSETRON
     Dosage: UNK
     Dates: start: 20220610, end: 20220923
  45. SENNOSIDES A AND B [Concomitant]
     Active Substance: SENNOSIDES A AND B
     Dosage: UNK
     Dates: start: 20220610
  46. TIXAGEVIMAB [Concomitant]
     Active Substance: TIXAGEVIMAB
     Dosage: UNK
     Dates: start: 20221104, end: 20221104
  47. CILGAVIMAB [Concomitant]
     Active Substance: CILGAVIMAB
     Dosage: UNK
     Dates: start: 20221104, end: 20221104
  48. ESTROGEN NOS/METHYLTESTOSTERONE [Concomitant]
     Dosage: UNK
     Dates: start: 20220923, end: 20221002
  49. IMMUNE GLOBULIN NOS [Concomitant]
     Active Substance: IMMUNE GLOBULIN NOS
     Dosage: UNK
     Dates: start: 20221104, end: 20221104
  50. PROCHLORPERAZINE [Concomitant]
     Active Substance: PROCHLORPERAZINE
     Dosage: UNK
     Dates: start: 20220610, end: 20220826
  51. CODEINE\GUAIFENESIN [Concomitant]
     Active Substance: CODEINE\GUAIFENESIN
     Dosage: UNK
     Dates: start: 20220801, end: 20220819
  52. AZITHROMYCIN [Concomitant]
     Active Substance: AZITHROMYCIN
     Indication: Rhinovirus infection
     Dosage: 500 MG, QD, ORAL
     Route: 048
     Dates: start: 20220816, end: 20220817
  53. AZITHROMYCIN [Concomitant]
     Active Substance: AZITHROMYCIN
     Dosage: 250 MG, QD, ORAL
     Route: 048
     Dates: start: 20220817, end: 20220820

REACTIONS (4)
  - Decreased appetite [Recovered/Resolved]
  - Pneumonia viral [Recovered/Resolved]
  - Pneumonia viral [Recovered/Resolved]
  - Neutrophil count decreased [Recovered/Resolved]

NARRATIVE: CASE EVENT DATE: 20220909
